FAERS Safety Report 6682613-X (Version None)
Quarter: 2010Q2

REPORT INFORMATION
  Report Type: 
  Country: None (occurrence: None)
  Receive Date: 20100414
  Receipt Date: 20100414
  Transmission Date: 20101027
  Serious: Yes (Other)
  Sender: FDA-Public Use
  Company Number: None

PATIENT
  Age: 66 Year
  Sex: Male
  Weight: 63.5036 kg

DRUGS (1)
  1. CIPROFLOXACIN [Suspect]
     Indication: GASTRIC INFECTION
     Dosage: 500 MG TWICE PER DAY PO
     Route: 048
     Dates: start: 20100310, end: 20100407

REACTIONS (3)
  - ANXIETY [None]
  - MUSCLE SPASMS [None]
  - MYALGIA [None]
